FAERS Safety Report 11794179 (Version 1)
Quarter: 2015Q4

REPORT INFORMATION
  Report Type: Spontaneous
  Country: US (occurrence: US)
  Receive Date: 20151202
  Receipt Date: 20151202
  Transmission Date: 20160305
  Serious: Yes (Other)
  Sender: FDA-Public Use
  Company Number: US-PFIZER INC-2015405252

PATIENT
  Sex: Female

DRUGS (2)
  1. GABAPENTIN. [Suspect]
     Active Substance: GABAPENTIN
     Indication: PAIN
  2. GABAPENTIN. [Suspect]
     Active Substance: GABAPENTIN
     Indication: MOOD ALTERED
     Dosage: 100 MG, 2X/DAY (IN THE MORNING AND AT 3 PM)

REACTIONS (8)
  - Urinary tract infection bacterial [Unknown]
  - Metabolic disorder [Unknown]
  - Muscle spasms [Unknown]
  - Feeling abnormal [Unknown]
  - Urinary tract infection fungal [Unknown]
  - Cystitis [Unknown]
  - Myalgia [Unknown]
  - Chills [Unknown]
